FAERS Safety Report 4982717-3 (Version None)
Quarter: 2006Q2

REPORT INFORMATION
  Report Type: 
  Country: None (occurrence: None)
  Receive Date: 20060420
  Receipt Date: 20060407
  Transmission Date: 20061013
  Serious: Yes (Hospitalization)
  Sender: FDA-Public Use
  Company Number: 2006AP000274

PATIENT
  Age: 22 Year
  Sex: Male

DRUGS (4)
  1. FLUOXETINE HYDROCHLORIDE [Suspect]
     Dosage: 20 MG; QD
  2. LITHIUM CARBONATE CAP [Suspect]
     Dosage: 600 MG; BID;
  3. DEXTROMETHORPHAN [Suspect]
     Indication: DRUG ABUSER
     Dosage: PO
     Route: 048
  4. CLONAZEPAM [Concomitant]

REACTIONS (4)
  - DRUG ABUSER [None]
  - DRUG INTERACTION [None]
  - PYREXIA [None]
  - SEROTONIN SYNDROME [None]
